FAERS Safety Report 24063352 (Version 2)
Quarter: 2024Q3

REPORT INFORMATION
  Report Type: Spontaneous
  Country: US (occurrence: US)
  Receive Date: 20240709
  Receipt Date: 20240718
  Transmission Date: 20241017
  Serious: No
  Sender: JOHNSON AND JOHNSON
  Company Number: US-JNJFOC-20240709604

PATIENT
  Sex: Male

DRUGS (1)
  1. BALVERSA [Suspect]
     Active Substance: ERDAFITINIB
     Indication: Transitional cell carcinoma metastatic
     Route: 048
     Dates: start: 20240603, end: 20240626

REACTIONS (3)
  - Scrotal erythema [Unknown]
  - Lip blister [Unknown]
  - Scrotal ulcer [Unknown]

NARRATIVE: CASE EVENT DATE: 20240626
